FAERS Safety Report 22394464 (Version 1)
Quarter: 2023Q2

REPORT INFORMATION
  Report Type: Spontaneous
  Country: US (occurrence: None)
  Receive Date: 20230530
  Receipt Date: 20230530
  Transmission Date: 20230722
  Serious: Yes (Death, Hospitalization)
  Sender: FDA-Public Use
  Company Number: None

PATIENT

DRUGS (3)
  1. DIGOXIN [Suspect]
     Active Substance: DIGOXIN
     Dosage: FREQUENCY : AS DIRECTED;?
  2. ATORVASTATIN [Suspect]
     Active Substance: ATORVASTATIN
  3. SIMVASTATIN [Suspect]
     Active Substance: SIMVASTATIN

REACTIONS (10)
  - Urinary tract infection [None]
  - Decreased appetite [None]
  - Diarrhoea [None]
  - Atrial fibrillation [None]
  - Myocardial infarction [None]
  - Abnormal behaviour [None]
  - Asthenia [None]
  - Asthenia [None]
  - Dysstasia [None]
  - Anal incontinence [None]
